FAERS Safety Report 15607184 (Version 3)
Quarter: 2019Q1

REPORT INFORMATION
  Report Type: Spontaneous
  Country: US (occurrence: US)
  Receive Date: 20181112
  Receipt Date: 20190313
  Transmission Date: 20190417
  Serious: Yes (Hospitalization, Other)
  Sender: FDA-Public Use
  Company Number: US-JNJFOC-20181108189

PATIENT
  Age: 78 Year
  Sex: Male

DRUGS (8)
  1. ENALAPRIL [Concomitant]
     Active Substance: ENALAPRIL
     Route: 065
  2. ZYTIGA [Suspect]
     Active Substance: ABIRATERONE ACETATE
     Indication: PRODUCT USED FOR UNKNOWN INDICATION
     Route: 048
     Dates: start: 201708
  3. CLOPIDOGREL [Concomitant]
     Active Substance: CLOPIDOGREL BISULFATE
     Route: 065
  4. TRIAMTERENE. [Concomitant]
     Active Substance: TRIAMTERENE
     Route: 065
  5. PREDNISONE. [Concomitant]
     Active Substance: PREDNISONE
     Route: 065
  6. SIMVASTATIN. [Concomitant]
     Active Substance: SIMVASTATIN
     Route: 065
  7. ATENOLOL. [Concomitant]
     Active Substance: ATENOLOL
     Route: 065
  8. CALCIUM [Concomitant]
     Active Substance: CALCIUM
     Route: 065

REACTIONS (6)
  - Fatigue [Recovering/Resolving]
  - Nausea [Recovering/Resolving]
  - Procedural hypotension [Unknown]
  - Hot flush [Recovering/Resolving]
  - Vascular graft [Unknown]
  - Sepsis [Unknown]

NARRATIVE: CASE EVENT DATE: 201708
